FAERS Safety Report 10587010 (Version 1)
Quarter: 2014Q4

REPORT INFORMATION
  Report Type: Spontaneous
  Country: US (occurrence: None)
  Receive Date: 20141114
  Receipt Date: 20141114
  Transmission Date: 20150529
  Serious: Yes (Other)
  Sender: FDA-Public Use
  Company Number: None

PATIENT
  Age: 5 Year
  Sex: Male

DRUGS (1)
  1. CARNITOR SF [Suspect]
     Active Substance: LEVOCARNITINE
     Indication: EPILEPSY
     Route: 048
     Dates: start: 20140703

REACTIONS (1)
  - Therapeutic response changed [None]

NARRATIVE: CASE EVENT DATE: 20140703
